FAERS Safety Report 7293468-7 (Version None)
Quarter: 2011Q1

REPORT INFORMATION
  Report Type: 
  Country: None (occurrence: None)
  Receive Date: 20110215
  Receipt Date: 20110208
  Transmission Date: 20110831
  Serious: Yes (Life-Threatening)
  Sender: FDA-Public Use
  Company Number: FR-BRISTOL-MYERS SQUIBB COMPANY-15519960

PATIENT
  Age: 86 Year
  Sex: Male

DRUGS (3)
  1. ERBITUX [Suspect]
     Indication: TONGUE NEOPLASM MALIGNANT STAGE UNSPECIFIED
     Route: 042
     Dates: start: 20110120, end: 20110120
  2. ASPIRIN [Concomitant]
     Indication: ANGIOPATHY
  3. POLARAMINE [Concomitant]
     Indication: PREMEDICATION

REACTIONS (6)
  - VOMITING [None]
  - URINARY INCONTINENCE [None]
  - MALAISE [None]
  - LOSS OF CONSCIOUSNESS [None]
  - ARRHYTHMIA [None]
  - CARDIAC ARREST [None]
